FAERS Safety Report 9222199 (Version 2)
Quarter: 2013Q2

REPORT INFORMATION
  Report Type: Spontaneous
  Country: US (occurrence: US)
  Receive Date: 20130410
  Receipt Date: 20130506
  Transmission Date: 20140414
  Serious: Yes (Other)
  Sender: FDA-Public Use
  Company Number: US-INCYTE CORPORATION-2013IN000696

PATIENT
  Age: 70 Year
  Sex: 0
  Weight: 44.44 kg

DRUGS (8)
  1. JAKAFI [Suspect]
     Indication: MYELOFIBROSIS
     Dosage: 5 MG, BID
     Route: 048
     Dates: start: 20120911, end: 201303
  2. PREDNISONE [Concomitant]
     Dosage: 1 DF, AS DIRECTED
     Route: 048
  3. LASIX [Concomitant]
     Dosage: 1 DF, AS DIRECTED
     Route: 048
  4. BONIVA [Concomitant]
     Dosage: 1 DF, QM
     Route: 048
  5. MS CONTIN [Concomitant]
     Route: 048
  6. PREMARIN [Concomitant]
     Dosage: 1 DF, QHS
     Route: 048
  7. TOPROL XL [Concomitant]
     Dosage: 1 DF, QD
     Route: 048
  8. VICODIN [Concomitant]
     Route: 048

REACTIONS (3)
  - Pulmonary hypertension [Recovered/Resolved]
  - Mitral valve incompetence [Not Recovered/Not Resolved]
  - Oedema peripheral [Unknown]
